FAERS Safety Report 5889492-9 (Version None)
Quarter: 2008Q3

REPORT INFORMATION
  Report Type: 
  Country: None (occurrence: None)
  Receive Date: 20080909
  Receipt Date: 20080827
  Transmission Date: 20090109
  Serious: Yes (Other)
  Sender: FDA-Public Use
  Company Number: AEUSA200800197

PATIENT
  Age: 15 Year
  Sex: Male

DRUGS (3)
  1. GAMUNEX [Suspect]
     Indication: GUILLAIN-BARRE SYNDROME
     Dosage: 1X; IV
     Route: 042
     Dates: start: 20080823, end: 20080823
  2. GAMUNEX [Suspect]
  3. GAMUNEX [Suspect]

REACTIONS (3)
  - FACIAL PALSY [None]
  - LYME DISEASE [None]
  - PLEOCYTOSIS [None]
